FAERS Safety Report 17518460 (Version 1)
Quarter: 2020Q1

REPORT INFORMATION
  Report Type: Spontaneous
  Country: NO (occurrence: NO)
  Receive Date: 20200309
  Receipt Date: 20200309
  Transmission Date: 20200409
  Serious: Yes (Other)
  Sender: FDA-Public Use
  Company Number: NO-MYLANLABS-2020M1024141

PATIENT
  Age: 72 Year
  Sex: Male

DRUGS (5)
  1. LISINOPRIL/HYDROKLORTIAZID ACTAVIS [Concomitant]
     Indication: HYPERTENSION
     Dosage: 1 DOSAGE FORM, QD
     Dates: start: 20190101
  2. CARVEDILOL HEXAL [Concomitant]
     Active Substance: CARVEDILOL
     Indication: HYPERTENSION
     Dosage: 1 TABLETT DAGLI
     Dates: start: 20190101
  3. ATORVASTATIN MYLAN [Suspect]
     Active Substance: ATORVASTATIN
     Indication: CARDIOVASCULAR EVENT PROPHYLAXIS
     Dosage: 40 MILLIGRAM, QD
     Route: 048
     Dates: start: 20191230, end: 20200108
  4. TRESIBA [Concomitant]
     Active Substance: INSULIN DEGLUDEC
     Indication: DIABETES MELLITUS
     Dosage: 140 INTERNATIONAL UNIT, QD
     Dates: start: 20191122
  5. AMLODIPIN SANDOZ                   /00972402/ [Concomitant]
     Active Substance: AMLODIPINE BESYLATE
     Indication: HYPERTENSION
     Dosage: 10 MILLIGRAM, QD
     Dates: start: 20190101

REACTIONS (2)
  - Product substitution issue [Recovered/Resolved]
  - Angioedema [Recovered/Resolved]

NARRATIVE: CASE EVENT DATE: 20200101
